FAERS Safety Report 6752362-8 (Version None)
Quarter: 2010Q2

REPORT INFORMATION
  Report Type: 
  Country: None (occurrence: None)
  Receive Date: 20100602
  Receipt Date: 20100528
  Transmission Date: 20101027
  Serious: Yes (Death)
  Sender: FDA-Public Use
  Company Number: FR-JNJFOC-20100510284

PATIENT
  Age: 21 Year
  Sex: Female

DRUGS (8)
  1. RISPERDAL CONSTA [Suspect]
     Indication: SCHIZOPHRENIA
     Route: 030
  2. DIPIPERON [Suspect]
     Indication: DRUG USE FOR UNKNOWN INDICATION
     Route: 048
  3. RISPERDAL [Suspect]
     Indication: SCHIZOPHRENIA
     Route: 048
  4. RISPERDAL [Suspect]
     Route: 048
  5. RISPERDAL [Suspect]
     Route: 048
  6. XANAX [Suspect]
     Indication: DRUG USE FOR UNKNOWN INDICATION
     Route: 065
  7. ARTANE [Concomitant]
     Route: 065
  8. UNKNOWN MEDICATION [Concomitant]
     Route: 065

REACTIONS (2)
  - COMPLETED SUICIDE [None]
  - INAPPROPRIATE SCHEDULE OF DRUG ADMINISTRATION [None]
